FAERS Safety Report 20672319 (Version 1)
Quarter: 2022Q2

REPORT INFORMATION
  Report Type: Spontaneous
  Country: US (occurrence: US)
  Receive Date: 20220405
  Receipt Date: 20220405
  Transmission Date: 20220721
  Serious: No
  Sender: FDA-Public Use
  Company Number: US-GLAXOSMITHKLINE-US2022058674

PATIENT
  Age: 78 Year
  Sex: Male

DRUGS (1)
  1. ANORO ELLIPTA [Suspect]
     Active Substance: UMECLIDINIUM BROMIDE\VILANTEROL TRIFENATATE
     Indication: Chronic obstructive pulmonary disease
     Dosage: 1 PUFF(S), QD , 62.5-25 ORAL INH(30S)USE 1 INHALATION BY MOUTH EVERY DAY
     Route: 055
     Dates: start: 201812

REACTIONS (3)
  - COVID-19 [Unknown]
  - Micturition disorder [Unknown]
  - Micturition urgency [Unknown]

NARRATIVE: CASE EVENT DATE: 20190201
